FAERS Safety Report 5989733-3 (Version None)
Quarter: 2008Q4

REPORT INFORMATION
  Report Type: 
  Country: None (occurrence: None)
  Receive Date: 20081208
  Receipt Date: 20081128
  Transmission Date: 20090506
  Serious: Yes (Hospitalization)
  Sender: FDA-Public Use
  Company Number: 08H-087-0315263-00

PATIENT
  Age: 65 Year
  Sex: Female

DRUGS (2)
  1. DEXMEDETOMIDINE INJECTION (DEXMEDETOMIDINE HYDROCHLORIDE INJECTION) (D [Suspect]
     Indication: SEDATIVE THERAPY
     Dosage: ^6 VIALS^ IN 108ML SALINE, CONTINUOUS, INTRAVENOUS
     Route: 042
     Dates: start: 20070626, end: 20070627
  2. SALINE (SODIUM CHLORIDE) [Concomitant]

REACTIONS (5)
  - BEDRIDDEN [None]
  - DELAYED RECOVERY FROM ANAESTHESIA [None]
  - DEPRESSED LEVEL OF CONSCIOUSNESS [None]
  - MUSCULAR WEAKNESS [None]
  - PNEUMONIA [None]
